FAERS Safety Report 6740816-X (Version None)
Quarter: 2010Q2

REPORT INFORMATION
  Report Type: 
  Country: None (occurrence: None)
  Receive Date: 20100525
  Receipt Date: 20100525
  Transmission Date: 20101027
  Serious: Yes (Other)
  Sender: FDA-Public Use
  Company Number: None

PATIENT
  Sex: Female
  Weight: 104.3273 kg

DRUGS (2)
  1. LISINOPRIL AND HYDROCHLOROTHIAZIDE [Suspect]
     Indication: HYPERTENSION
     Dosage: ONE TABLET -40/12.5- DAILY PO
     Route: 048
     Dates: start: 20091210, end: 20100310
  2. BENICAR [Suspect]

REACTIONS (5)
  - COUGH [None]
  - MIDDLE INSOMNIA [None]
  - POSTNASAL DRIP [None]
  - PRODUCT SUBSTITUTION ISSUE [None]
  - SLEEP DISORDER [None]
